FAERS Safety Report 20834178 (Version 1)
Quarter: 2022Q2

REPORT INFORMATION
  Report Type: Spontaneous
  Country: FR (occurrence: FR)
  Receive Date: 20220516
  Receipt Date: 20220516
  Transmission Date: 20220721
  Serious: Yes (Hospitalization)
  Sender: FDA-Public Use
  Company Number: None

PATIENT
  Age: 63 Year
  Sex: Male
  Weight: 70 kg

DRUGS (4)
  1. CELEBREX [Suspect]
     Active Substance: CELECOXIB
     Indication: Ankylosing spondylitis
     Dosage: 200 MG
     Route: 048
  2. INFLIXIMAB [Suspect]
     Active Substance: INFLIXIMAB
     Indication: Ankylosing spondylitis
     Dosage: 300 MG, EVERY 9 WEEKS
     Route: 042
     Dates: start: 20151009
  3. DOLIPRANE [Concomitant]
     Active Substance: ACETAMINOPHEN
     Indication: Ankylosing spondylitis
     Dosage: 1 G
     Route: 048
  4. XANAX [Concomitant]
     Active Substance: ALPRAZOLAM
     Dosage: 0.25 MG
     Route: 048

REACTIONS (3)
  - White matter lesion [Not Recovered/Not Resolved]
  - Cerebral haematoma [Recovered/Resolved]
  - Hypertension [Recovered/Resolved]

NARRATIVE: CASE EVENT DATE: 20200724
